FAERS Safety Report 24121885 (Version 1)
Quarter: 2024Q3

REPORT INFORMATION
  Report Type: Spontaneous
  Country: US (occurrence: US)
  Receive Date: 20240722
  Receipt Date: 20240722
  Transmission Date: 20241017
  Serious: No
  Sender: SANOFI AVENTIS
  Company Number: US-SA-SAC20240718000608

PATIENT
  Age: 24 Year
  Sex: Male

DRUGS (4)
  1. ALPROLIX [Suspect]
     Active Substance: EFTRENONACOG ALFA
     Indication: Factor IX deficiency
     Dosage: 4000 IU (3600-4400) SLOW IV PUSH), QW
     Route: 042
     Dates: start: 202405
  2. ALPROLIX [Suspect]
     Active Substance: EFTRENONACOG ALFA
     Indication: Factor IX deficiency
     Dosage: 4000 IU (3600-4400) SLOW IV PUSH), QW
     Route: 042
     Dates: start: 202405
  3. ALPROLIX [Suspect]
     Active Substance: EFTRENONACOG ALFA
     Dosage: 4000 IU (3600-4400) SLOW IV PUSH), PRN (EVERY 48 HOURS AS NEEDED FO RACUTE BLEED)
     Route: 042
     Dates: start: 202405
  4. ALPROLIX [Suspect]
     Active Substance: EFTRENONACOG ALFA
     Dosage: 4000 IU (3600-4400) SLOW IV PUSH), PRN (EVERY 48 HOURS AS NEEDED FO RACUTE BLEED)
     Route: 042
     Dates: start: 202405

REACTIONS (1)
  - Dizziness [Unknown]

NARRATIVE: CASE EVENT DATE: 20240101
